FAERS Safety Report 8014614-3 (Version None)
Quarter: 2011Q4

REPORT INFORMATION
  Report Type: 
  Country: None (occurrence: None)
  Receive Date: 20111229
  Receipt Date: 20111223
  Transmission Date: 20120403
  Serious: Yes (Other)
  Sender: FDA-Public Use
  Company Number: IE-MEDIMMUNE-MEDI-0014187

PATIENT
  Sex: Male
  Weight: 4 kg

DRUGS (3)
  1. SYNAGIS [Suspect]
     Route: 030
     Dates: start: 20111010, end: 20111010
  2. KAPSOVIT [Concomitant]
  3. IRON [Concomitant]

REACTIONS (2)
  - BRONCHIOLITIS [None]
  - DIARRHOEA [None]
